FAERS Safety Report 5714722-3 (Version None)
Quarter: 2008Q2

REPORT INFORMATION
  Report Type: 
  Country: None (occurrence: None)
  Receive Date: 20080423
  Receipt Date: 19941021
  Transmission Date: 20081010
  Serious: Yes (Death)
  Sender: FDA-Public Use
  Company Number: US-ROCHE-940270123001

PATIENT
  Age: 45 Year
  Sex: Male

DRUGS (1)
  1. ZALCITABINE [Suspect]
     Route: 048
     Dates: start: 19920729

REACTIONS (3)
  - DEATH [None]
  - KAPOSI'S SARCOMA [None]
  - MUSCLE SPASMS [None]
